FAERS Safety Report 9160284 (Version 1)
Quarter: 2013Q1

REPORT INFORMATION
  Report Type: Spontaneous
  Country: CA (occurrence: CA)
  Receive Date: 20130313
  Receipt Date: 20130313
  Transmission Date: 20140127
  Serious: Yes (Hospitalization)
  Sender: FDA-Public Use
  Company Number: CA-PFIZER INC-2013079115

PATIENT
  Age: 57 Year
  Sex: Male
  Weight: 112 kg

DRUGS (7)
  1. CELEBREX [Suspect]
     Dosage: 200 MG, UNK
     Dates: start: 1999, end: 200712
  2. ASA [Concomitant]
     Dosage: 81 MG, 1X/DAY
  3. BISOPROLOL [Concomitant]
     Dosage: 5 MG, 1X/DAY
  4. RAMIPRIL [Concomitant]
     Dosage: 2.5 MG, 1X/DAY
  5. CRESTOR [Concomitant]
     Dosage: 20 MG, 1X/DAY
  6. NITRO-SPRAY [Concomitant]
     Indication: ANGINA PECTORIS
     Dosage: AS NEEDED
  7. LOSEC [Concomitant]
     Dosage: 20 MG, 1X/DAY

REACTIONS (1)
  - Cardiac stress test abnormal [Recovered/Resolved]
